FAERS Safety Report 7722437-5 (Version None)
Quarter: 2011Q3

REPORT INFORMATION
  Report Type: 
  Country: None (occurrence: None)
  Receive Date: 20110825
  Receipt Date: 20110818
  Transmission Date: 20111222
  Serious: Yes (Hospitalization)
  Sender: FDA-Public Use
  Company Number: 15497993

PATIENT
  Sex: Female

DRUGS (9)
  1. PLACEBO [Suspect]
     Indication: EMBOLISM
     Dosage: ORAL
     Route: 048
     Dates: start: 20110111, end: 20110116
  2. APIXABAN [Suspect]
     Indication: EMBOLISM
     Dosage: 20 MILLIGRAM 1 DAY, ORAL
     Route: 048
     Dates: start: 20110111, end: 20110116
  3. WARFARIN SODIUM [Suspect]
     Indication: EMBOLISM
     Dosage: 6 MILLIGRAM 1 DAY, ORAL
     Route: 048
     Dates: start: 20110111, end: 20110116
  4. CHYMORAL (CHYMOTRYPSIN) [Concomitant]
  5. TRAMAZAC (TRAMADOL HCL) [Concomitant]
  6. FRAGMIN [Concomitant]
  7. ENOXAPARIN SODIUM [Suspect]
     Indication: EMBOLISM
     Dosage: 112 MILLIGRAM 1 DAY, SC
     Route: 058
     Dates: start: 20110111, end: 20110116
  8. TAXIM (CEFOTAXIME SODIUM) [Concomitant]
  9. ULTRACET (TRAMADOL HCL + ACETAMINOPHEN) [Concomitant]

REACTIONS (6)
  - JOINT INJURY [None]
  - FALL [None]
  - DIZZINESS [None]
  - BREAST INJURY [None]
  - HAEMOGLOBIN DECREASED [None]
  - HAEMATOMA [None]
